FAERS Safety Report 25681684 (Version 8)
Quarter: 2025Q3

REPORT INFORMATION
  Report Type: Spontaneous
  Country: US (occurrence: US)
  Receive Date: 20250814
  Receipt Date: 20250918
  Transmission Date: 20251021
  Serious: Yes (Death, Hospitalization, Disabling, Other)
  Sender: GILEAD
  Company Number: US-GILEAD-2025-0724069

PATIENT
  Age: 45 Year
  Sex: Male
  Weight: 108.9 kg

DRUGS (1)
  1. YESCARTA [Suspect]
     Active Substance: AXICABTAGENE CILOLEUCEL
     Indication: Diffuse large B-cell lymphoma
     Route: 065
     Dates: start: 20250805, end: 20250805

REACTIONS (6)
  - Brain death [Fatal]
  - Brain oedema [Fatal]
  - Immune effector cell-associated neurotoxicity syndrome [Fatal]
  - Cytokine release syndrome [Not Recovered/Not Resolved]
  - Obstructive sleep apnoea syndrome [Unknown]
  - Obesity [Unknown]

NARRATIVE: CASE EVENT DATE: 20250806
